FAERS Safety Report 12271431 (Version 1)
Quarter: 2016Q2

REPORT INFORMATION
  Report Type: Spontaneous
  Country: CN (occurrence: CN)
  Receive Date: 20160415
  Receipt Date: 20160415
  Transmission Date: 20160815
  Serious: Yes (Hospitalization)
  Sender: FDA-Public Use
  Company Number: CN-ABBVIE-16P-035-1606148-00

PATIENT
  Age: 50 Year
  Sex: Female

DRUGS (5)
  1. DESOGESTREL AND ETHINYL ESTRADIOL [Suspect]
     Active Substance: DESOGESTREL\ETHINYL ESTRADIOL
     Indication: PRODUCT USED FOR UNKNOWN INDICATION
     Dosage: UNK
     Route: 048
  2. LEUPROLIDE ACETATE. [Suspect]
     Active Substance: LEUPROLIDE ACETATE
     Indication: PRODUCT USED FOR UNKNOWN INDICATION
     Dosage: 3.75 MG, MONTHLY
     Route: 058
  3. NORETHISTERONE [Concomitant]
     Active Substance: NORETHINDRONE
     Indication: MENORRHAGIA
     Dosage: UNK
     Route: 048
     Dates: start: 201401, end: 201403
  4. NORETHISTERONE [Concomitant]
     Active Substance: NORETHINDRONE
     Dosage: UNK
     Route: 048
  5. NORETHISTERONE [Concomitant]
     Active Substance: NORETHINDRONE
     Dosage: 5 MG, Q8HR
     Route: 048

REACTIONS (5)
  - Acute kidney injury [None]
  - Pulmonary embolism [None]
  - Cerebral infarction [None]
  - Antiphospholipid syndrome [Recovering/Resolving]
  - Renal embolism [None]
